FAERS Safety Report 5371184-6 (Version None)
Quarter: 2007Q2

REPORT INFORMATION
  Report Type: 
  Country: None (occurrence: None)
  Receive Date: 20070615
  Receipt Date: 20070206
  Transmission Date: 20071010
  Serious: Yes (Other)
  Sender: FDA-Public Use
  Company Number: 200710884US

PATIENT
  Age: 63 Year
  Sex: Female

DRUGS (4)
  1. LANTUS [Suspect]
     Indication: DIABETES MELLITUS NON-INSULIN-DEPENDENT
     Dosage: 40 U
  2. OXYCODONE HYDROCHLORIDE (OXYCONTIN) [Concomitant]
  3. VALSARTAN (DIOVANE) [Concomitant]
  4. ATORVASTATIN CALCIUM (LIPITOR) [Concomitant]

REACTIONS (2)
  - DRUG INEFFECTIVE [None]
  - HYPERGLYCAEMIA [None]
